FAERS Safety Report 6824463-7 (Version None)
Quarter: 2010Q3

REPORT INFORMATION
  Report Type: 
  Country: None (occurrence: None)
  Receive Date: 20100708
  Receipt Date: 20061029
  Transmission Date: 20110219
  Serious: No
  Sender: FDA-Public Use
  Company Number: US-PFIZER INC-2006133425

PATIENT
  Sex: Male
  Weight: 74.84 kg

DRUGS (4)
  1. CHANTIX [Suspect]
     Indication: SMOKING CESSATION THERAPY
     Route: 048
     Dates: start: 20061027
  2. ZYPREXA [Concomitant]
     Route: 048
  3. LITHOBID [Concomitant]
     Route: 048
  4. KLONOPIN [Concomitant]
     Route: 048

REACTIONS (2)
  - ABNORMAL SENSATION IN EYE [None]
  - VISION BLURRED [None]
